FAERS Safety Report 7134047-1 (Version None)
Quarter: 2010Q4

REPORT INFORMATION
  Report Type: 
  Country: None (occurrence: None)
  Receive Date: 20101203
  Receipt Date: 20101125
  Transmission Date: 20110411
  Serious: Yes (Hospitalization, Other)
  Sender: FDA-Public Use
  Company Number: DE-JNJFOC-20090303411

PATIENT
  Age: 78 Year
  Sex: Male
  Weight: 90 kg

DRUGS (8)
  1. DURAGESIC-100 [Suspect]
     Indication: SPINAL COLUMN STENOSIS
     Route: 062
  2. DURAGESIC-100 [Suspect]
     Indication: PAIN
     Route: 062
  3. LYRICA [Suspect]
     Indication: SPINAL COLUMN STENOSIS
     Route: 048
  4. LYRICA [Suspect]
     Indication: PAIN
     Route: 048
  5. LISINOPRIL [Concomitant]
     Indication: HYPERTENSION
     Route: 048
  6. MOVICOL [Concomitant]
     Indication: CONSTIPATION
     Route: 048
  7. RANITIC [Concomitant]
     Indication: REFLUX OESOPHAGITIS
     Route: 048
  8. VERAPAMIL [Concomitant]
     Indication: HYPERTENSION
     Route: 048

REACTIONS (2)
  - CONSTIPATION [None]
  - DIVERTICULITIS [None]
